FAERS Safety Report 11396960 (Version 2)
Quarter: 2015Q4

REPORT INFORMATION
  Report Type: Spontaneous
  Country: CA (occurrence: CA)
  Receive Date: 20150819
  Receipt Date: 20151008
  Transmission Date: 20160304
  Serious: Yes (Hospitalization, Disabling, Other)
  Sender: FDA-Public Use
  Company Number: PHHY2015CA097583

PATIENT
  Age: 53 Year
  Sex: Female

DRUGS (7)
  1. PREDNISONE. [Concomitant]
     Active Substance: PREDNISONE
     Indication: PAIN
     Route: 065
  2. METHYLSULFONYLMETHANE [Concomitant]
     Active Substance: DIMETHYL SULFONE
     Indication: PAIN
     Route: 065
  3. CICLOSPORIN 1 A PHARMA [Suspect]
     Active Substance: CYCLOSPORINE
     Indication: PAIN
     Route: 065
  4. ARAVA [Concomitant]
     Active Substance: LEFLUNOMIDE
     Indication: PAIN
     Route: 065
  5. CODEIN [Concomitant]
     Active Substance: CODEINE
     Indication: PAIN
     Route: 065
  6. VOLTAREN//DICLOFENAC DIETHYLAMINE [Concomitant]
     Indication: PAIN
     Route: 065
  7. NAPROSYN [Concomitant]
     Active Substance: NAPROXEN
     Indication: PAIN
     Route: 065

REACTIONS (9)
  - Gait disturbance [Unknown]
  - Thrombosis [Unknown]
  - Anaemia [Unknown]
  - Rheumatoid arthritis [Unknown]
  - Peripheral swelling [Unknown]
  - Pain [Unknown]
  - Pulmonary embolism [Unknown]
  - Infection [Unknown]
  - Drug ineffective [Unknown]
